FAERS Safety Report 7463965-X (Version None)
Quarter: 2011Q2

REPORT INFORMATION
  Report Type: 
  Country: None (occurrence: None)
  Receive Date: 20110506
  Receipt Date: 20110503
  Transmission Date: 20111010
  Serious: Yes (Other)
  Sender: FDA-Public Use
  Company Number: GB-GILEAD-E2B_00001248

PATIENT
  Age: 44 Year
  Sex: Female

DRUGS (4)
  1. EFAVIRENZ [Suspect]
     Dates: start: 20050901
  2. TRUVADA [Suspect]
     Indication: HIV INFECTION
     Dates: start: 20050901
  3. EFAVIRENZ [Suspect]
     Indication: HIV INFECTION
     Dosage: ALSO ON MAY2004,SEP2005
     Dates: start: 20040301
  4. EFAVIRENZ [Suspect]
     Dates: start: 20040501

REACTIONS (2)
  - ABORTION SPONTANEOUS [None]
  - PREGNANCY [None]
